FAERS Safety Report 12946034 (Version 2)
Quarter: 2016Q4

REPORT INFORMATION
  Report Type: Spontaneous
  Country: DE (occurrence: DE)
  Receive Date: 20161115
  Receipt Date: 20161222
  Transmission Date: 20170207
  Serious: Yes (Other)
  Sender: FDA-Public Use
  Company Number: PHHY2016DE155532

PATIENT
  Age: 54 Year
  Sex: Male

DRUGS (2)
  1. TRAMETINIB [Suspect]
     Active Substance: TRAMETINIB
     Indication: MALIGNANT MELANOMA
     Dosage: 2 MG, QD
     Route: 065
     Dates: start: 20160602
  2. DABRAFENIB [Suspect]
     Active Substance: DABRAFENIB
     Indication: MALIGNANT MELANOMA
     Dosage: 150 MG, BID
     Route: 065
     Dates: start: 20160408

REACTIONS (14)
  - Hypokinesia [Unknown]
  - Haemoglobin decreased [Unknown]
  - Intervertebral disc space narrowing [Recovering/Resolving]
  - Decreased appetite [Recovering/Resolving]
  - Ejection fraction decreased [Unknown]
  - Disease progression [Unknown]
  - Pancreatitis [Unknown]
  - Aspartate aminotransferase increased [Unknown]
  - Nausea [Recovering/Resolving]
  - Mitral valve incompetence [Unknown]
  - Hepatitis [Unknown]
  - Tricuspid valve incompetence [Unknown]
  - Dilatation ventricular [Unknown]
  - Alanine aminotransferase increased [Unknown]

NARRATIVE: CASE EVENT DATE: 2016
